FAERS Safety Report 9695029 (Version 3)
Quarter: 2013Q4

REPORT INFORMATION
  Report Type: Spontaneous
  Country: GB (occurrence: GB)
  Receive Date: 20131119
  Receipt Date: 20131218
  Transmission Date: 20140711
  Serious: Yes (Disabling)
  Sender: FDA-Public Use
  Company Number: GB-MYLANLABS-2013S1025026

PATIENT
  Age: 68 Year
  Sex: Male
  Weight: 93 kg

DRUGS (7)
  1. LANSOPRAZOLE [Suspect]
     Indication: ABDOMINAL PAIN UPPER
     Route: 048
     Dates: start: 201005, end: 201005
  2. LANSOPRAZOLE [Suspect]
     Indication: OESOPHAGEAL PAIN
     Route: 048
     Dates: start: 201005, end: 201005
  3. LANSOPRAZOLE [Suspect]
     Indication: DYSPEPSIA
     Route: 048
     Dates: start: 201005, end: 201005
  4. ALLOPURINOL [Concomitant]
     Indication: GOUT
     Route: 048
     Dates: start: 20030618, end: 20111013
  5. GABAPENTIN [Concomitant]
     Indication: PAIN
     Route: 048
     Dates: start: 20110119
  6. LISINOPRIL [Concomitant]
     Indication: HYPERTENSION
     Route: 048
     Dates: start: 20090417, end: 20111013
  7. REBOXETINE [Concomitant]
     Indication: DEPRESSION
     Route: 048
     Dates: start: 20080417, end: 20110729

REACTIONS (4)
  - Abdominal pain [Not Recovered/Not Resolved]
  - Chronic fatigue syndrome [Not Recovered/Not Resolved]
  - Oesophageal candidiasis [Not Recovered/Not Resolved]
  - Oropharyngeal pain [Not Recovered/Not Resolved]
